FAERS Safety Report 24592398 (Version 7)
Quarter: 2025Q1

REPORT INFORMATION
  Report Type: Report from Study
  Country: DE (occurrence: DE)
  Receive Date: 20241108
  Receipt Date: 20250117
  Transmission Date: 20250408
  Serious: Yes (Hospitalization)
  Sender: ROCHE
  Company Number: DE-ML39632-2347446-0

PATIENT
  Age: 26 Year
  Sex: Female
  Weight: 55 kg

DRUGS (23)
  1. OCREVUS [Suspect]
     Active Substance: OCRELIZUMAB
     Indication: Relapsing multiple sclerosis
     Route: 042
     Dates: start: 20190514, end: 20190528
  2. OCREVUS [Suspect]
     Active Substance: OCRELIZUMAB
     Route: 042
     Dates: start: 20191202
  3. PFIZER-BIONTECH COVID-19 VACCINE [Concomitant]
     Active Substance: TOZINAMERAN
     Indication: COVID-19 prophylaxis
     Route: 030
     Dates: start: 20210408, end: 20210408
  4. PFIZER-BIONTECH COVID-19 VACCINE [Concomitant]
     Active Substance: TOZINAMERAN
     Route: 030
     Dates: start: 20210519, end: 20210519
  5. PFIZER-BIONTECH COVID-19 VACCINE [Concomitant]
     Active Substance: TOZINAMERAN
     Route: 030
     Dates: start: 20211201, end: 20211201
  6. OMNI BIOTIC 6 [Concomitant]
     Indication: Prophylaxis
     Route: 048
     Dates: start: 20240321, end: 20240326
  7. OFLOXACIN [Concomitant]
     Active Substance: OFLOXACIN
     Indication: Conjunctivitis
     Dates: start: 20240405, end: 20240412
  8. CIPROFLOXACIN\FLUOCINOLONE ACETONIDE [Concomitant]
     Active Substance: CIPROFLOXACIN\FLUOCINOLONE ACETONIDE
     Indication: Otitis media
     Dates: start: 20240806, end: 20240809
  9. DIETARY SUPPLEMENT\HERBALS [Concomitant]
     Active Substance: DIETARY SUPPLEMENT\HERBALS
     Indication: Headache
     Dates: start: 20240513, end: 20240520
  10. DIETARY SUPPLEMENT\HERBALS [Concomitant]
     Active Substance: DIETARY SUPPLEMENT\HERBALS
     Indication: Ear pain
  11. PANTOPRAZOLE [Concomitant]
     Active Substance: PANTOPRAZOLE
     Route: 048
     Dates: start: 20240820, end: 20240829
  12. RHINIVICT NASAL [Concomitant]
     Indication: Bacterial infection
     Route: 045
     Dates: start: 20240321, end: 20240326
  13. XYLOMETAZOLINE HYDROCHLORIDE [Concomitant]
     Active Substance: XYLOMETAZOLINE HYDROCHLORIDE
     Indication: Headache
     Dosage: DEFINITION OF THE INTERVAL: AS REQUIRED
     Route: 045
     Dates: start: 202309, end: 202310
  14. XYLOMETAZOLINE HYDROCHLORIDE [Concomitant]
     Active Substance: XYLOMETAZOLINE HYDROCHLORIDE
     Indication: Ear pain
     Dates: start: 20240513, end: 20240520
  15. XYLOMETAZOLINE HYDROCHLORIDE [Concomitant]
     Active Substance: XYLOMETAZOLINE HYDROCHLORIDE
     Indication: Chronic sinusitis
  16. AMOXICILLIN\CLAVULANATE POTASSIUM [Concomitant]
     Active Substance: AMOXICILLIN\CLAVULANATE POTASSIUM
     Indication: Bacterial infection
     Route: 048
     Dates: start: 20240306, end: 20240312
  17. AMOXICILLIN\CLAVULANATE POTASSIUM [Concomitant]
     Active Substance: AMOXICILLIN\CLAVULANATE POTASSIUM
     Indication: C-reactive protein
  18. CLINDAHEXAL [CLINDAMYCIN PHOSPHATE] [Concomitant]
     Indication: Bacterial infection
     Route: 048
     Dates: start: 20240321, end: 20240326
  19. DESLORATADINE [Concomitant]
     Active Substance: DESLORATADINE
     Indication: Chronic sinusitis
     Route: 048
     Dates: start: 20231012, end: 20231123
  20. DYMISTA [Concomitant]
     Active Substance: AZELASTINE HYDROCHLORIDE\FLUTICASONE PROPIONATE
     Indication: Chronic sinusitis
     Route: 045
     Dates: start: 20240130
  21. HYSAN [HYALURONATE SODIUM] [Concomitant]
     Indication: Chronic sinusitis
     Route: 045
     Dates: start: 202309, end: 202310
  22. BUDESONIDE [Concomitant]
     Active Substance: BUDESONIDE
     Indication: Chronic sinusitis
     Route: 045
     Dates: start: 20231012, end: 20231123
  23. Momenta nasal spray [Concomitant]
     Route: 045
     Dates: start: 20240607

REACTIONS (1)
  - Chronic sinusitis [Not Recovered/Not Resolved]

NARRATIVE: CASE EVENT DATE: 20230101
